FAERS Safety Report 21981817 (Version 3)
Quarter: 2025Q3

REPORT INFORMATION
  Report Type: Report from Study
  Country: US (occurrence: US)
  Receive Date: 20230212
  Receipt Date: 20250916
  Transmission Date: 20251021
  Serious: Yes (Other)
  Sender: ABBVIE
  Company Number: US-ABBVIE-4302811

PATIENT
  Age: 67 Year
  Sex: Female

DRUGS (3)
  1. SKYRIZI [Suspect]
     Active Substance: RISANKIZUMAB-RZAA
     Indication: Psoriasis
     Route: 058
     Dates: start: 20210101
  2. SKYRIZI [Suspect]
     Active Substance: RISANKIZUMAB-RZAA
     Route: 058
     Dates: start: 20220208
  3. MAGNESIUM [Concomitant]
     Active Substance: MAGNESIUM
     Indication: Bone disorder

REACTIONS (3)
  - Nerve compression [Recovered/Resolved]
  - Weight decreased [Unknown]
  - Dry eye [Not Recovered/Not Resolved]

NARRATIVE: CASE EVENT DATE: 20210501
